FAERS Safety Report 24829287 (Version 1)
Quarter: 2025Q1

REPORT INFORMATION
  Report Type: Spontaneous
  Country: US (occurrence: US)
  Receive Date: 20250110
  Receipt Date: 20250110
  Transmission Date: 20250408
  Serious: Yes (Life-Threatening, Hospitalization, Other)
  Sender: JUBILANT
  Company Number: None

PATIENT
  Age: 47 Year
  Sex: Male

DRUGS (1)
  1. LEVETIRACETAM [Suspect]
     Active Substance: LEVETIRACETAM
     Indication: Seizure
     Dosage: 1 G, 2 TIMES PER DAY (INITIAL LOADING DOSE BEFORE TITRATING UP TO A DOSE OF 1 G EVERY 12 HOURS PER N
     Route: 065

REACTIONS (1)
  - Acute kidney injury [Recovering/Resolving]
